FAERS Safety Report 9226627 (Version 2)
Quarter: 2013Q2

REPORT INFORMATION
  Report Type: Spontaneous
  Country: US (occurrence: US)
  Receive Date: 20130412
  Receipt Date: 20130523
  Transmission Date: 20140414
  Serious: Yes (Other)
  Sender: FDA-Public Use
  Company Number: US-ABBOTT-13P-163-1073905-00

PATIENT
  Age: 65 Year
  Sex: Female
  Weight: 55.39 kg

DRUGS (5)
  1. SYNTHROID [Suspect]
     Indication: HYPOTHYROIDISM
     Dates: start: 201110, end: 201110
  2. SYNTHROID [Suspect]
     Dosage: 1 AND 1/2 PILLS PER DAY
     Dates: start: 201111
  3. IBUPROFEN [Suspect]
     Indication: ARTHROPATHY
  4. ANTIBIOTICS [Suspect]
     Indication: PRODUCT USED FOR UNKNOWN INDICATION
  5. MULTIVITIAMINS [Concomitant]
     Indication: PRODUCT USED FOR UNKNOWN INDICATION

REACTIONS (13)
  - Myocardial infarction [Unknown]
  - Abdominal discomfort [Unknown]
  - Joint swelling [Unknown]
  - Gastric disorder [Unknown]
  - Fatigue [Recovered/Resolved]
  - Bone pain [Recovered/Resolved]
  - Chest discomfort [Recovered/Resolved]
  - Stress [Unknown]
  - Periarthritis [Unknown]
  - Pain [Unknown]
  - Inflammation [Unknown]
  - Palpitations [Recovered/Resolved]
  - Heart rate increased [Unknown]
